FAERS Safety Report 4478377-0 (Version None)
Quarter: 2004Q4

REPORT INFORMATION
  Report Type: 
  Country: None (occurrence: None)
  Receive Date: 20041019
  Receipt Date: 20040930
  Transmission Date: 20050328
  Serious: Yes (Other)
  Sender: FDA-Public Use
  Company Number: PHNU2004DE03394

PATIENT
  Sex: Female

DRUGS (6)
  1. FAMVIR [Suspect]
     Indication: HERPES SIMPLEX
     Dosage: 250 MG, BID
     Route: 048
     Dates: start: 20040602, end: 20040801
  2. CLIMODIEN [Concomitant]
  3. AURORIX [Concomitant]
  4. BISOPROLOL FUMARATE [Concomitant]
     Dosage: UNK, UNK
  5. PSYCHOPHARMACEUTICAL [Concomitant]
  6. ANTIHYPERTENSIVES [Concomitant]

REACTIONS (11)
  - ANOREXIA [None]
  - ASTHENIA [None]
  - COLONOSCOPY ABNORMAL [None]
  - DIARRHOEA [None]
  - DYSPNOEA EXERTIONAL [None]
  - FATIGUE [None]
  - GAMMA-GLUTAMYLTRANSFERASE INCREASED [None]
  - HYPERHIDROSIS [None]
  - INTESTINAL POLYP [None]
  - NAUSEA [None]
  - VOMITING [None]
